FAERS Safety Report 12554237 (Version 1)
Quarter: 2016Q3

REPORT INFORMATION
  Report Type: Spontaneous
  Country: US (occurrence: US)
  Receive Date: 20160713
  Receipt Date: 20160713
  Transmission Date: 20161109
  Serious: No
  Sender: FDA-Public Use
  Company Number: US-PFIZER INC-2016308131

PATIENT
  Sex: Female
  Weight: 85.28 kg

DRUGS (1)
  1. SKELAXIN [Suspect]
     Active Substance: METAXALONE
     Indication: MUSCLE STRAIN
     Dosage: UNK

REACTIONS (1)
  - Abdominal pain upper [Recovered/Resolved]
